FAERS Safety Report 10550388 (Version 2)
Quarter: 2014Q4

REPORT INFORMATION
  Report Type: Spontaneous
  Country: US (occurrence: US)
  Receive Date: 20141029
  Receipt Date: 20141029
  Transmission Date: 20150529
  Serious: No
  Sender: FDA-Public Use
  Company Number: US-TEVA-438723USA

PATIENT
  Sex: Male
  Weight: 79.45 kg

DRUGS (7)
  1. ASPIRIN. [Concomitant]
     Active Substance: ASPIRIN
     Indication: CARDIAC DISORDER
  2. ZYREM [Concomitant]
     Indication: INSOMNIA
     Dosage: EVERY NIGHT
     Route: 048
  3. MODAFINIL. [Suspect]
     Active Substance: MODAFINIL
     Indication: SLEEP APNOEA SYNDROME
  4. ASPIRIN. [Concomitant]
     Active Substance: ASPIRIN
     Indication: HEADACHE
     Route: 048
  5. NUVIGIL [Suspect]
     Active Substance: ARMODAFINIL
     Indication: NARCOLEPSY
     Dosage: 500 MILLIGRAM DAILY;
     Route: 048
     Dates: start: 2011, end: 201305
  6. PROVIGIL [Suspect]
     Active Substance: MODAFINIL
  7. MODAFINIL. [Suspect]
     Active Substance: MODAFINIL
     Indication: NARCOLEPSY
     Dosage: 2 PILLS AM AND 2 PILLS 4 PM
     Route: 048
     Dates: start: 2013

REACTIONS (2)
  - Sluggishness [Recovered/Resolved]
  - Weight decreased [Not Recovered/Not Resolved]
